FAERS Safety Report 20384423 (Version 1)
Quarter: 2022Q1

REPORT INFORMATION
  Report Type: Spontaneous
  Country: US (occurrence: None)
  Receive Date: 20220127
  Receipt Date: 20220127
  Transmission Date: 20220423
  Serious: Yes (Other)
  Sender: FDA-Public Use
  Company Number: None

PATIENT
  Age: 34 Year
  Sex: Male
  Weight: 94.5 kg

DRUGS (3)
  1. SUBOXONE [Suspect]
     Active Substance: BUPRENORPHINE HYDROCHLORIDE\NALOXONE HYDROCHLORIDE
     Indication: Drug dependence
     Dosage: OTHER QUANTITY : 3 SUBLINGUAL FILMS;?FREQUENCY : DAILY;?
     Route: 060
  2. ADDERALL [Concomitant]
     Active Substance: AMPHETAMINE ASPARTATE\AMPHETAMINE SULFATE\DEXTROAMPHETAMINE SACCHARATE\DEXTROAMPHETAMINE SULFATE
  3. Excedrine [Concomitant]

REACTIONS (6)
  - Tooth loss [None]
  - Dental caries [None]
  - Dental caries [None]
  - Pain [None]
  - Emotional distress [None]
  - Quality of life decreased [None]

NARRATIVE: CASE EVENT DATE: 20160110
